FAERS Safety Report 24217558 (Version 1)
Quarter: 2024Q3

REPORT INFORMATION
  Report Type: Spontaneous
  Country: CN (occurrence: CN)
  Receive Date: 20240816
  Receipt Date: 20240816
  Transmission Date: 20241017
  Serious: Yes (Hospitalization, Disabling)
  Sender: PAREXEL
  Company Number: CN-SHANGHAI JUNSHI BIOSCIENCES CO., LTD.-CN2024010964

PATIENT

DRUGS (8)
  1. TORIPALIMAB [Suspect]
     Active Substance: TORIPALIMAB
     Indication: Lung adenocarcinoma
     Dosage: 240 MG (D1)
     Route: 041
     Dates: start: 20240517, end: 20240517
  2. TORIPALIMAB [Suspect]
     Active Substance: TORIPALIMAB
     Dosage: 240 MG (D1)
     Route: 041
     Dates: start: 20240607, end: 20240607
  3. TORIPALIMAB [Suspect]
     Active Substance: TORIPALIMAB
     Dosage: 240 MG (D1)
     Route: 041
     Dates: start: 20240725, end: 20240725
  4. DOCETAXEL [Suspect]
     Active Substance: DOCETAXEL\DOCETAXEL ANHYDROUS
     Indication: Lung adenocarcinoma
     Dosage: 90 MG (D1), EVERY 21 DAYS
     Route: 041
     Dates: start: 20240725, end: 20240725
  5. CISPLATIN [Suspect]
     Active Substance: CISPLATIN
     Indication: Lung adenocarcinoma
     Dosage: 40 MG
     Route: 041
     Dates: start: 20240529, end: 20240529
  6. CISPLATIN [Suspect]
     Active Substance: CISPLATIN
     Dosage: 40 MG
     Route: 041
     Dates: start: 20240601, end: 20240601
  7. CISPLATIN [Suspect]
     Active Substance: CISPLATIN
     Dosage: 40 MG
     Route: 041
     Dates: start: 20240604, end: 20240604
  8. CISPLATIN [Suspect]
     Active Substance: CISPLATIN
     Dosage: 40 MG
     Route: 041
     Dates: start: 20240725, end: 20240725

REACTIONS (6)
  - Discomfort [Not Recovered/Not Resolved]
  - Myelosuppression [Not Recovered/Not Resolved]
  - Pyrexia [Recovered/Resolved]
  - Nausea [Not Recovered/Not Resolved]
  - Vomiting [Not Recovered/Not Resolved]
  - Off label use [Unknown]

NARRATIVE: CASE EVENT DATE: 20240517
